FAERS Safety Report 5292395-4 (Version None)
Quarter: 2007Q2

REPORT INFORMATION
  Report Type: 
  Country: None (occurrence: None)
  Receive Date: 20070410
  Receipt Date: 20070329
  Transmission Date: 20071010
  Serious: Yes (Death, Other)
  Sender: FDA-Public Use
  Company Number: US-PFIZER INC-2004096018

PATIENT
  Sex: Male
  Weight: 163.3 kg

DRUGS (2)
  1. NEURONTIN [Suspect]
     Indication: DIABETIC NEUROPATHY
     Dates: start: 19980101, end: 20021030
  2. NEURONTIN [Suspect]
     Indication: RESTLESS LEGS SYNDROME

REACTIONS (2)
  - ANXIETY [None]
  - COMPLETED SUICIDE [None]
